FAERS Safety Report 11856155 (Version 2)
Quarter: 2017Q1

REPORT INFORMATION
  Report Type: Spontaneous
  Country: FR (occurrence: FR)
  Receive Date: 20151221
  Receipt Date: 20170207
  Transmission Date: 20170428
  Serious: Yes (Hospitalization)
  Sender: FDA-Public Use
  Company Number: FR-BEH-2015056896

PATIENT
  Age: 64 Year
  Sex: Female

DRUGS (1)
  1. HIZENTRA [Suspect]
     Active Substance: HUMAN IMMUNOGLOBULIN G
     Indication: HYPOGAMMAGLOBULINAEMIA
     Dosage: 200 MG/ML; SOLUTION FOR SUBCUTANEOUS INJECTION; 5 VIALS OF 4 G (20 G)
     Route: 058
     Dates: start: 20151112, end: 20151112

REACTIONS (3)
  - Cryoglobulinaemia [Not Recovered/Not Resolved]
  - Purpura [Unknown]
  - Vascular purpura [Recovering/Resolving]

NARRATIVE: CASE EVENT DATE: 20151118
